FAERS Safety Report 25094998 (Version 1)
Quarter: 2025Q1

REPORT INFORMATION
  Report Type: Spontaneous
  Country: CN (occurrence: CN)
  Receive Date: 20250319
  Receipt Date: 20250319
  Transmission Date: 20250409
  Serious: Yes (Life-Threatening, Other)
  Sender: GLAND PHARMA LTD
  Company Number: CN-GLANDPHARMA-CN-2025GLNLIT00733

PATIENT
  Age: 55 Year
  Sex: Female

DRUGS (11)
  1. CARBOPLATIN [Suspect]
     Active Substance: CARBOPLATIN
     Indication: Cervix carcinoma stage IV
     Route: 065
  2. CARBOPLATIN [Suspect]
     Active Substance: CARBOPLATIN
     Indication: Cervix carcinoma stage IV
  3. CISPLATIN [Suspect]
     Active Substance: CISPLATIN
     Indication: Cervix carcinoma stage IV
     Route: 065
  4. CISPLATIN [Suspect]
     Active Substance: CISPLATIN
     Indication: Cervix carcinoma stage IV
  5. BEVACIZUMAB [Suspect]
     Active Substance: BEVACIZUMAB
     Indication: Cervix carcinoma stage IV
     Route: 065
  6. CADONILIMAB [Suspect]
     Active Substance: CADONILIMAB
     Indication: Cervix carcinoma stage IV
     Route: 065
  7. CADONILIMAB [Suspect]
     Active Substance: CADONILIMAB
     Indication: Metastases to lymph nodes
  8. TAXOL [Suspect]
     Active Substance: PACLITAXEL
     Indication: Cervix carcinoma stage IV
     Route: 065
  9. TAXOL [Suspect]
     Active Substance: PACLITAXEL
     Indication: Metastases to lymph nodes
  10. SINTILIMAB [Suspect]
     Active Substance: SINTILIMAB
     Indication: Cervix carcinoma stage IV
     Route: 065
  11. SINTILIMAB [Suspect]
     Active Substance: SINTILIMAB
     Indication: Cervix carcinoma stage IV

REACTIONS (14)
  - Hyperkalaemia [Unknown]
  - Leukopenia [Unknown]
  - Thrombocytopenia [Unknown]
  - Anaemia [Unknown]
  - Neutropenia [Unknown]
  - Myelosuppression [Unknown]
  - Hyperphosphataemia [Unknown]
  - Hypoalbuminaemia [Unknown]
  - Hypomagnesaemia [Unknown]
  - Hypophosphataemia [Unknown]
  - Infection [Unknown]
  - Rash [Unknown]
  - Blood creatinine increased [Unknown]
  - Product use in unapproved indication [Unknown]
